FAERS Safety Report 8646604 (Version 4)
Quarter: 2013Q1

REPORT INFORMATION
  Report Type: Report from Study
  Country: JP (occurrence: JP)
  Receive Date: 20120702
  Receipt Date: 20130124
  Transmission Date: 20140127
  Serious: Yes (Death)
  Sender: FDA-Public Use
  Company Number: JP-009507513-1206USA04769

PATIENT
  Age: 63 Year
  Sex: Male

DRUGS (7)
  1. ISENTRESS [Suspect]
     Indication: HIV INFECTION
     Dosage: 400 MG, BID
     Route: 048
     Dates: start: 20111111, end: 20111215
  2. EPZICOM [Suspect]
     Indication: HIV INFECTION
     Dosage: 1 DF, QD
     Route: 048
     Dates: start: 20111111, end: 20111215
  3. CLIDAMACIN [Concomitant]
     Indication: TOXOPLASMOSIS
     Dosage: 600 MG, 4 UNITS IN 1 DAY
     Route: 042
     Dates: start: 20111025
  4. PYRIMETHAMINE (+) SULFADOXINE [Concomitant]
     Indication: TOXOPLASMOSIS
     Dosage: 25 MG, TID
     Dates: start: 20111026, end: 20111121
  5. NEOPAREN [Concomitant]
     Indication: NUTRITIONAL SUPPLEMENTATION
     Dosage: 1000 ML, QD
     Dates: start: 20111115, end: 20111215
  6. ALBUMIN HUMAN [Concomitant]
     Indication: CARDIAC FAILURE
     Dosage: 20 ML, QD
     Dates: start: 20111119, end: 20111120
  7. ALBUMIN HUMAN [Concomitant]
     Dosage: 20 ML, UNK
     Dates: start: 20111121, end: 20111205

REACTIONS (1)
  - Renal failure acute [Fatal]
